FAERS Safety Report 8767496 (Version 2)
Quarter: 2012Q4

REPORT INFORMATION
  Report Type: 
  Country: JP (occurrence: JP)
  Receive Date: 20120906
  Receipt Date: 20120906
  Transmission Date: 20130627
  Serious: Yes (Other)
  Sender: FDA-Public Use
  Company Number: PHHY2012JP055763

PATIENT
  Age: 36 Year
  Sex: Female

DRUGS (3)
  1. ZOMETA [Suspect]
     Indication: METASTASES TO BONE
     Dosage: 4 mg, per administration
     Route: 041
     Dates: start: 20110913, end: 20120619
  2. PACLITAXEL [Suspect]
     Dosage: 150 mg,
     Route: 042
     Dates: start: 20120326, end: 20120619
  3. AVASTIN [Suspect]
     Dosage: 700 mg
     Route: 042
     Dates: start: 20120326, end: 20120619

REACTIONS (3)
  - Dental caries [Not Recovered/Not Resolved]
  - Periodontitis [Not Recovered/Not Resolved]
  - Oral infection [Unknown]
